FAERS Safety Report 5659866-X (Version None)
Quarter: 2008Q1

REPORT INFORMATION
  Report Type: 
  Country: None (occurrence: None)
  Receive Date: 20080311
  Receipt Date: 20070731
  Transmission Date: 20080703
  Serious: No
  Sender: FDA-Public Use
  Company Number: US-BAYER-200712454BCC

PATIENT
  Age: 57 Year
  Sex: Male
  Weight: 113 kg

DRUGS (12)
  1. ALEVE [Suspect]
     Indication: ARTHRITIS
     Dosage: TOTAL DAILY DOSE: 880 MG  UNIT DOSE: 220 MG
     Route: 048
     Dates: start: 20070715
  2. ALEVE [Suspect]
     Dosage: TOTAL DAILY DOSE: 660 MG  UNIT DOSE: 220 MG
     Route: 048
     Dates: start: 20070716, end: 20070721
  3. ALEVE [Suspect]
     Dosage: UNIT DOSE: 220 MG
     Route: 048
     Dates: start: 20070714
  4. VERAPAMIL [Concomitant]
  5. FINASTERIDE [Concomitant]
  6. LIPITOR [Concomitant]
  7. ALTACE [Concomitant]
  8. METFORMIN HCL [Concomitant]
  9. MULTI-VITAMIN [Concomitant]
  10. GLUCOSAMINE CHONDROITIN [Concomitant]
  11. ASPIRIN (NOT BAYER) [Concomitant]
     Route: 048
  12. ROBITUSSIN [Concomitant]
     Indication: NASOPHARYNGITIS
     Route: 048
     Dates: end: 20070713

REACTIONS (2)
  - SENSATION OF FOREIGN BODY [None]
  - TINNITUS [None]
